APPROVED DRUG PRODUCT: AVENTYL
Active Ingredient: NORTRIPTYLINE HYDROCHLORIDE
Strength: EQ 10MG BASE/5ML **Federal Register determination that product was not discontinued or withdrawn for safety or effectiveness reasons**
Dosage Form/Route: SOLUTION;ORAL
Application: N014685 | Product #001
Applicant: RANBAXY PHARMACEUTICALS INC
Approved: Approved Prior to Jan 1, 1982 | RLD: Yes | RS: No | Type: DISCN